FAERS Safety Report 4634115-X (Version None)
Quarter: 2005Q2

REPORT INFORMATION
  Report Type: 
  Country: None (occurrence: None)
  Receive Date: 20050413
  Receipt Date: 20050401
  Transmission Date: 20051028
  Serious: Yes (Hospitalization)
  Sender: FDA-Public Use
  Company Number: FR-GLAXOSMITHKLINE-B0376675A

PATIENT
  Age: 75 Year
  Sex: Female

DRUGS (5)
  1. LAMICTAL [Suspect]
     Indication: EPILEPSY
     Route: 048
     Dates: start: 20041130, end: 20050106
  2. NOOTROPYL [Suspect]
     Route: 048
  3. FLECAINE [Suspect]
     Route: 048
  4. APROVEL [Suspect]
     Route: 048
  5. ASASANTINE [Suspect]
     Route: 048

REACTIONS (11)
  - ANAEMIA [None]
  - CONJUNCTIVITIS [None]
  - EOSINOPHILIA [None]
  - HYPERTHERMIA [None]
  - LEUKOCYTOSIS [None]
  - OEDEMA [None]
  - PYREXIA [None]
  - RASH ERYTHEMATOUS [None]
  - RENAL FAILURE [None]
  - SKIN EXFOLIATION [None]
  - THROMBOCYTOPENIA [None]
